FAERS Safety Report 18885160 (Version 1)
Quarter: 2021Q1

REPORT INFORMATION
  Report Type: Spontaneous
  Country: US (occurrence: US)
  Receive Date: 20210212
  Receipt Date: 20210212
  Transmission Date: 20210420
  Serious: No
  Sender: FDA-Public Use
  Company Number: None

PATIENT
  Age: 61 Year
  Sex: Female
  Weight: 63 kg

DRUGS (1)
  1. MANUKA HONEY SINUS CLEANER [Suspect]
     Active Substance: HERBALS\HONEY
     Indication: SINUS DISORDER
     Dosage: ?          QUANTITY:1 SPRAY(S);?
     Route: 055
     Dates: start: 20210201, end: 20210203

REACTIONS (4)
  - Nasal congestion [None]
  - Ocular hyperaemia [None]
  - Dyspnoea [None]
  - Condition aggravated [None]

NARRATIVE: CASE EVENT DATE: 20210201
